FAERS Safety Report 7218507-0 (Version None)
Quarter: 2011Q1

REPORT INFORMATION
  Report Type: 
  Country: None (occurrence: None)
  Receive Date: 20110110
  Receipt Date: 20110107
  Transmission Date: 20110831
  Serious: Yes (Other)
  Sender: FDA-Public Use
  Company Number: JP-ROCHE-696318

PATIENT
  Sex: Male
  Weight: 82 kg

DRUGS (29)
  1. VALGANCICLOVIR [Suspect]
     Route: 048
     Dates: start: 20100205, end: 20100217
  2. TOCILIZUMAB [Suspect]
     Route: 041
     Dates: start: 20100212, end: 20100301
  3. PREDONINE [Concomitant]
     Route: 041
     Dates: start: 20100127, end: 20100205
  4. PREDONINE [Concomitant]
     Dosage: DOSE FORM: PERORAL AGENT.
     Route: 048
     Dates: start: 20100220, end: 20100304
  5. PREDONINE [Concomitant]
     Route: 048
     Dates: start: 20100322
  6. FUROSEMIDE [Concomitant]
     Route: 042
     Dates: start: 20100126, end: 20100205
  7. MAXIPIME [Concomitant]
     Dosage: DRUG: MAXIPIME ( CEFEPIME DIHYDROCHLORIDE )
     Route: 042
     Dates: start: 20100203, end: 20100212
  8. TOCILIZUMAB [Suspect]
     Route: 041
     Dates: start: 20100521, end: 20100611
  9. PRODIF [Concomitant]
     Route: 041
     Dates: start: 20100203, end: 20100204
  10. ZYLORIC [Concomitant]
     Route: 048
     Dates: start: 20100122
  11. HUMULIN R [Concomitant]
     Dosage: DOSE: 10 IU, DRUG: HUMULIN R ( INSULIN HUMAN ( GENETICAL RECOMBINATION ) )
     Route: 058
     Dates: start: 20100131, end: 20100131
  12. PRODIF [Concomitant]
     Route: 041
     Dates: start: 20100205, end: 20100219
  13. TOCILIZUMAB [Suspect]
     Dosage: DOSAGE IS UNCERTAIN.
     Route: 041
     Dates: start: 20100625, end: 20100720
  14. BAKTAR [Suspect]
     Indication: PROPHYLAXIS
     Route: 048
     Dates: start: 20100220, end: 20100521
  15. FUROSEMIDE [Concomitant]
     Dosage: ROUTE: INTRAVENOUS ( NOT OTHERWISE SPECIFIED )
     Route: 042
     Dates: start: 20100123, end: 20100125
  16. FUROSEMIDE [Concomitant]
     Route: 042
     Dates: start: 20100206, end: 20100208
  17. ACIROVEC [Concomitant]
     Dosage: DOSE FORM: PERORAL AGENT.
     Route: 048
     Dates: start: 20100202, end: 20100208
  18. PREDONINE [Concomitant]
     Route: 048
     Dates: start: 20100305, end: 20100321
  19. BAKTAR [Concomitant]
     Route: 048
     Dates: start: 20100220
  20. TOCILIZUMAB [Suspect]
     Route: 041
     Dates: start: 20100315, end: 20100430
  21. PREDONINE [Concomitant]
     Dosage: DRUG: PREDONINE ( PREDNISOLONE SODIUM SUCCINATE )
     Route: 041
     Dates: start: 20100115, end: 20100126
  22. PREDONINE [Concomitant]
     Route: 041
     Dates: start: 20100213, end: 20100219
  23. HUMULIN R [Concomitant]
     Dosage: DOSE: 10 IU
     Route: 058
     Dates: start: 20100201, end: 20100205
  24. TOCILIZUMAB [Suspect]
     Indication: CASTLEMAN'S DISEASE
     Route: 041
     Dates: start: 20100129, end: 20100129
  25. PREDONINE [Concomitant]
     Route: 041
     Dates: start: 20100206, end: 20100212
  26. MEROPENEM [Concomitant]
     Dosage: DRUG: MEROPEN ( MEROPENEM TRIHYDRATE).
     Route: 041
     Dates: start: 20100127, end: 20100201
  27. FAMOTIDINE [Concomitant]
     Dosage: DRUG: GASRICK D ( FAMOTIDINE )
     Route: 048
     Dates: start: 20100130
  28. MAGMITT [Concomitant]
     Route: 048
     Dates: start: 20100204, end: 20100226
  29. LOXONIN [Concomitant]
     Route: 048
     Dates: start: 20100415

REACTIONS (5)
  - NEUTROPHIL COUNT DECREASED [None]
  - ALOPECIA [None]
  - BLOOD UREA INCREASED [None]
  - RASH [None]
  - CYTOMEGALOVIRUS INFECTION [None]
